FAERS Safety Report 9988598 (Version 2)
Quarter: 2014Q1

REPORT INFORMATION
  Report Type: Spontaneous
  Country: CA (occurrence: CA)
  Receive Date: 20140310
  Receipt Date: 20140318
  Transmission Date: 20141002
  Serious: Yes (Other)
  Sender: FDA-Public Use
  Company Number: CA-ROCHE-1361495

PATIENT
  Sex: Female

DRUGS (4)
  1. XOLAIR [Suspect]
     Indication: ASTHMA
     Route: 058
     Dates: start: 20101216
  2. XOLAIR [Suspect]
     Route: 058
     Dates: start: 20140203
  3. XOLAIR [Suspect]
     Route: 058
     Dates: start: 20140303
  4. SYMBICORT [Concomitant]

REACTIONS (2)
  - Weight decreased [Unknown]
  - Stress [Unknown]
